FAERS Safety Report 5373605-1 (Version None)
Quarter: 2007Q2

REPORT INFORMATION
  Report Type: 
  Country: None (occurrence: None)
  Receive Date: 20070626
  Receipt Date: 20070206
  Transmission Date: 20071010
  Serious: Yes (Hospitalization)
  Sender: FDA-Public Use
  Company Number: 481607

PATIENT

DRUGS (1)
  1. KLONOPIN [Suspect]
     Indication: CONVULSION

REACTIONS (1)
  - CONVULSION [None]
